FAERS Safety Report 18092271 (Version 2)
Quarter: 2020Q3

REPORT INFORMATION
  Report Type: Other
  Country: CA (occurrence: CA)
  Receive Date: 20200730
  Receipt Date: 20200804
  Transmission Date: 20201103
  Serious: Yes (Hospitalization, Other)
  Sender: FDA-Public Use
  Company Number: CA-PFIZER INC-2020287528

PATIENT
  Age: 9 Month
  Sex: Male

DRUGS (1)
  1. HYDROCORTISONE. [Suspect]
     Active Substance: HYDROCORTISONE
     Indication: RASH PRURITIC
     Dosage: UNK
     Route: 061

REACTIONS (8)
  - Papilloedema [Recovered/Resolved]
  - Fontanelle bulging [Recovered/Resolved]
  - Infant irritability [Recovered/Resolved]
  - Decreased appetite [Recovered/Resolved]
  - Infantile vomiting [Recovered/Resolved]
  - Hypothyroidism [Recovered/Resolved]
  - Idiopathic intracranial hypertension [Recovered/Resolved]
  - Pyrexia [Recovered/Resolved]
